FAERS Safety Report 9788112 (Version 1)
Quarter: 2013Q4

REPORT INFORMATION
  Report Type: Spontaneous
  Country: US (occurrence: None)
  Receive Date: 20131227
  Receipt Date: 20131227
  Transmission Date: 20140711
  Serious: Yes (Hospitalization)
  Sender: FDA-Public Use
  Company Number: None

PATIENT
  Age: 79 Year
  Sex: Female
  Weight: 75.2 kg

DRUGS (14)
  1. COUMADIN [Suspect]
     Indication: ATRIAL FIBRILLATION
     Dosage: WEDNESDAY
     Route: 048
  2. COUMADIN [Suspect]
     Indication: ATRIAL FIBRILLATION
     Dosage: SSMTTHF
     Route: 048
  3. ADVAIR [Concomitant]
  4. LASIX [Concomitant]
  5. CARDIZEM [Concomitant]
  6. CELEXA [Concomitant]
  7. KLONOPIN [Concomitant]
  8. DIGOXIN [Concomitant]
  9. FLONASE [Concomitant]
  10. NEURONTIN [Concomitant]
  11. SYNTHROID [Concomitant]
  12. SPIRIVA [Concomitant]
  13. ALDACTONE [Concomitant]
  14. VIT D [Concomitant]

REACTIONS (4)
  - Gastroenteritis [None]
  - Coagulopathy [None]
  - International normalised ratio increased [None]
  - Blood creatinine increased [None]
